FAERS Safety Report 15104695 (Version 1)
Quarter: 2018Q2

REPORT INFORMATION
  Report Type: Spontaneous
  Country: US (occurrence: US)
  Receive Date: 20180611
  Receipt Date: 20180611
  Transmission Date: 20180711
  Serious: No
  Sender: FDA-Public Use
  Company Number: None

PATIENT
  Age: 65 Year
  Sex: Female
  Weight: 56.25 kg

DRUGS (16)
  1. DEN-PLUS [Concomitant]
  2. MELATONIN [Concomitant]
     Active Substance: MELATONIN
  3. FLAXSEED [Concomitant]
     Active Substance: FLAX SEED
  4. XIIDRA [Suspect]
     Active Substance: LIFITEGRAST
     Indication: DRY EYE
     Dosage: ?          QUANTITY:1 DROP(S);?
     Route: 047
     Dates: start: 20171212, end: 20180404
  5. MYRBETRIQ [Concomitant]
     Active Substance: MIRABEGRON
  6. DESMOPRESSIN [Concomitant]
     Active Substance: DESMOPRESSIN
  7. DUAVEE [Concomitant]
     Active Substance: BAZEDOXIFENE ACETATE\ESTROGENS, CONJUGATED
  8. ZINC. [Concomitant]
     Active Substance: ZINC
  9. BIOTIN [Concomitant]
     Active Substance: BIOTIN
  10. MAGNESIUM [Concomitant]
     Active Substance: MAGNESIUM
  11. XIIDRA [Concomitant]
     Active Substance: LIFITEGRAST
  12. INTRAOSA [Concomitant]
  13. THEANINE [Concomitant]
     Active Substance: THEANINE
  14. LIFE EXTENSION BONE RESTORE BONE CALCIUM [Concomitant]
  15. FAMOTIDINE. [Concomitant]
     Active Substance: FAMOTIDINE
  16. HYDROEYE [Concomitant]
     Active Substance: MINERALS\OMEGA-3 FATTY ACIDS\VITAMINS

REACTIONS (4)
  - Lacrimation increased [None]
  - Ocular hyperaemia [None]
  - Pruritus [None]
  - Eye pain [None]

NARRATIVE: CASE EVENT DATE: 20180106
